FAERS Safety Report 20233117 (Version 1)
Quarter: 2021Q4

REPORT INFORMATION
  Report Type: Report from Study
  Country: FR (occurrence: FR)
  Receive Date: 20211227
  Receipt Date: 20211227
  Transmission Date: 20220303
  Serious: Yes (Other)
  Sender: FDA-Public Use
  Company Number: FR-ASTELLAS-2021US049043

PATIENT
  Age: 78 Year
  Sex: Male
  Weight: 61 kg

DRUGS (11)
  1. TACROLIMUS [Suspect]
     Active Substance: TACROLIMUS
     Indication: Immunosuppression
     Route: 048
     Dates: start: 20210427, end: 20210817
  2. METFORMIN PAMOATE [Concomitant]
     Active Substance: METFORMIN PAMOATE
     Indication: Diabetes mellitus
     Route: 048
     Dates: start: 20190409
  3. Dexeryl [Concomitant]
     Indication: Dry skin prophylaxis
     Dosage: 1 DF (APPLICATION), ONCE DAILY
     Route: 003
     Dates: start: 20190409
  4. NOVORAPID [Concomitant]
     Active Substance: INSULIN ASPART
     Indication: Diabetes mellitus
     Dosage: 3 DF (UNITS), ONCE DAILY
     Route: 058
     Dates: start: 20181226
  5. KARDEGIC [Concomitant]
     Active Substance: ASPIRIN DL-LYSINE
     Indication: Antiplatelet therapy
     Route: 048
     Dates: start: 20170423
  6. AMLODIPINE BESYLATE [Concomitant]
     Active Substance: AMLODIPINE BESYLATE
     Indication: Hypertension
     Route: 048
     Dates: start: 20181226
  7. URAPIDIL [Concomitant]
     Active Substance: URAPIDIL
     Indication: Hypertension
     Route: 048
     Dates: start: 20181226
  8. RAMIPRIL [Concomitant]
     Active Substance: RAMIPRIL
     Indication: Hypertension
     Route: 048
     Dates: start: 20210208
  9. TOUJEO [Concomitant]
     Active Substance: INSULIN GLARGINE
     Indication: Diabetes mellitus
     Dosage: 28 DF (UNITS), ONCE DAILY
     Route: 058
     Dates: start: 20210208
  10. SILODOSIN [Concomitant]
     Active Substance: SILODOSIN
     Indication: Benign prostatic hyperplasia
     Route: 048
     Dates: start: 20210426
  11. HERBALS\SAW PALMETTO [Concomitant]
     Active Substance: HERBALS\SAW PALMETTO
     Indication: Benign prostatic hyperplasia
     Route: 048
     Dates: start: 20210426

REACTIONS (1)
  - Lymphopenia [Recovered/Resolved]

NARRATIVE: CASE EVENT DATE: 20210527
